FAERS Safety Report 7815162-3 (Version None)
Quarter: 2011Q4

REPORT INFORMATION
  Report Type: 
  Country: None (occurrence: None)
  Receive Date: 20111012
  Receipt Date: 20110923
  Transmission Date: 20120403
  Serious: Yes (Hospitalization)
  Sender: FDA-Public Use
  Company Number: 2011PROUSA00669

PATIENT
  Age: 72 Year
  Sex: Male
  Weight: 95.2 kg

DRUGS (6)
  1. TRAMADOL HCL [Concomitant]
  2. LUPRON [Concomitant]
  3. HYDROCODODONE/APAP (HYDROCODONE BITARTRATE, PARACETAMOL) [Concomitant]
  4. ZOLEDRONIC ACID [Concomitant]
  5. PROVENGE [Suspect]
     Indication: PROSTATE CANCER METASTATIC
     Dosage: 250 ML, SINGLE, INTRAVENOUS
     Route: 042
     Dates: start: 20110915, end: 20110915
  6. METFORMIN HCL [Concomitant]

REACTIONS (12)
  - DEHYDRATION [None]
  - HYPOXIA [None]
  - DIABETES MELLITUS INADEQUATE CONTROL [None]
  - PALPITATIONS [None]
  - ABDOMINAL DISTENSION [None]
  - INFUSION RELATED REACTION [None]
  - ASTHENIA [None]
  - CONFUSIONAL STATE [None]
  - PULMONARY OEDEMA [None]
  - PNEUMONIA [None]
  - MOBILITY DECREASED [None]
  - CHANGE OF BOWEL HABIT [None]
